FAERS Safety Report 20460824 (Version 2)
Quarter: 2022Q4

REPORT INFORMATION
  Report Type: Report from Study
  Country: US (occurrence: US)
  Receive Date: 20220211
  Receipt Date: 20221013
  Transmission Date: 20230113
  Serious: Yes (Hospitalization)
  Sender: FDA-Public Use
  Company Number: US-SECURA BIO, INC.-2022-SECUR-US000010

PATIENT

DRUGS (2)
  1. DUVELISIB [Suspect]
     Active Substance: DUVELISIB
     Indication: Peripheral T-cell lymphoma unspecified refractory
     Dosage: 75 MG, BID
     Route: 048
     Dates: start: 20220112, end: 2022
  2. DUVELISIB [Suspect]
     Active Substance: DUVELISIB
     Dosage: 25 UNK
     Route: 048

REACTIONS (1)
  - Pancreatitis [Recovered/Resolved]

NARRATIVE: CASE EVENT DATE: 20220201
